FAERS Safety Report 19619898 (Version 2)
Quarter: 2022Q2

REPORT INFORMATION
  Report Type: Spontaneous
  Country: US (occurrence: None)
  Receive Date: 20210728
  Receipt Date: 20220621
  Transmission Date: 20220721
  Serious: No
  Sender: FDA-Public Use
  Company Number: US-ROCHE-2741896

PATIENT
  Sex: Female

DRUGS (2)
  1. XELODA [Suspect]
     Active Substance: CAPECITABINE
     Indication: Product used for unknown indication
     Route: 065
     Dates: start: 20200906
  2. TUKYSA [Suspect]
     Active Substance: TUCATINIB
     Indication: Breast cancer female
     Route: 065
     Dates: start: 20200906

REACTIONS (12)
  - Decreased appetite [Unknown]
  - Nausea [Unknown]
  - Liver function test increased [Unknown]
  - Gait disturbance [Unknown]
  - Renal disorder [Unknown]
  - Headache [Unknown]
  - Alopecia [Unknown]
  - Paronychia [Unknown]
  - Onychoclasis [Unknown]
  - Fatigue [Unknown]
  - Hypersomnia [Unknown]
  - Nasal ulcer [Unknown]
